FAERS Safety Report 20267057 (Version 3)
Quarter: 2022Q2

REPORT INFORMATION
  Report Type: Spontaneous
  Country: US (occurrence: US)
  Receive Date: 20211231
  Receipt Date: 20220617
  Transmission Date: 20220720
  Serious: No
  Sender: FDA-Public Use
  Company Number: US-LUPIN PHARMACEUTICALS INC.-2021-25550

PATIENT
  Sex: Female

DRUGS (1)
  1. ALBUTEROL SULFATE [Suspect]
     Active Substance: ALBUTEROL SULFATE
     Indication: Chronic obstructive pulmonary disease
     Dosage: UNK (2 PUFFS IN MORNING AND ONE PUFF IN NIGHT, WHEN SHE BREATHES HEAVY AND 2 PUFFS AT BEDTIME)

REACTIONS (5)
  - Wrong technique in product usage process [Unknown]
  - Product lot number issue [Unknown]
  - Device information output issue [Unknown]
  - Product substitution issue [Unknown]
  - No adverse event [Unknown]
